FAERS Safety Report 6091113-X (Version None)
Quarter: 2009Q1

REPORT INFORMATION
  Report Type: 
  Country: None (occurrence: None)
  Receive Date: 20090220
  Receipt Date: 20090210
  Transmission Date: 20090719
  Serious: Yes (Other)
  Sender: FDA-Public Use
  Company Number: GXKR2009CN01791

PATIENT
  Age: 17 Year
  Sex: Male

DRUGS (1)
  1. ACETAMINOPHEN [Suspect]
     Dosage: 500 MG, ONCE/SINGLE, 75 MG

REACTIONS (9)
  - ANAPHYLACTIC REACTION [None]
  - HYPOTENSION [None]
  - PRURITUS [None]
  - RASH ERYTHEMATOUS [None]
  - SKIN WARM [None]
  - TACHYCARDIA [None]
  - THROAT IRRITATION [None]
  - URTICARIA [None]
  - VASODILATATION [None]
